FAERS Safety Report 17027246 (Version 1)
Quarter: 2019Q4

REPORT INFORMATION
  Report Type: Spontaneous
  Country: US (occurrence: US)
  Receive Date: 20191009
  Receipt Date: 20191009
  Transmission Date: 20200122
  Serious: Yes (Hospitalization)
  Sender: FDA-Public Use
  Company Number: None

PATIENT
  Age: 57 Year
  Sex: Male

DRUGS (1)
  1. OPSUMIT [Suspect]
     Active Substance: MACITENTAN
     Indication: PULMONARY ARTERIAL HYPERTENSION
     Route: 048
     Dates: start: 20190921

REACTIONS (5)
  - Acute kidney injury [None]
  - Atelectasis [None]
  - Procedural hypotension [None]
  - Respiratory failure [None]
  - Hypoxia [None]

NARRATIVE: CASE EVENT DATE: 20190923
